FAERS Safety Report 19739884 (Version 1)
Quarter: 2021Q3

REPORT INFORMATION
  Report Type: Spontaneous
  Country: TW (occurrence: TW)
  Receive Date: 20210823
  Receipt Date: 20210823
  Transmission Date: 20211014
  Serious: Yes (Other)
  Sender: FDA-Public Use
  Company Number: TW-PRINSTON PHARMACEUTICAL INC.-2021PRN00301

PATIENT
  Age: 20 Year
  Sex: Female

DRUGS (2)
  1. BUPROPION. [Suspect]
     Active Substance: BUPROPION
     Indication: MAJOR DEPRESSION
     Dosage: 300 MG, 1X/DAY
     Route: 065
  2. ESTRODIAL/CYPROTERONE ACETATE [Suspect]
     Active Substance: CYPROTERONE ACETATE\ESTRADIOL VALERATE
     Indication: INTERMENSTRUAL BLEEDING
     Dosage: EXTENDED?RELEASE; 35 MICROG AND 2 MG DAILY, RESPECTIVELY; 1X/DAY
     Route: 048

REACTIONS (2)
  - Seizure [Recovered/Resolved]
  - Drug interaction [Recovered/Resolved]
